FAERS Safety Report 4837890-4 (Version None)
Quarter: 2005Q4

REPORT INFORMATION
  Report Type: 
  Country: None (occurrence: None)
  Receive Date: 20051123
  Receipt Date: 20051123
  Transmission Date: 20060501
  Serious: Yes (Other)
  Sender: FDA-Public Use
  Company Number: None

PATIENT
  Age: 44 Year
  Sex: Female
  Weight: 86.1834 kg

DRUGS (3)
  1. SYNTHROID [Suspect]
     Indication: OEDEMA PERIPHERAL
     Dosage: 112 MCG
  2. ZAROXOLYN [Suspect]
     Indication: THYROID DISORDER
     Dosage: 5 MG QD
  3. KCL TAB [Suspect]
     Dosage: 1 MG TAB QD

REACTIONS (3)
  - ABDOMINAL PAIN [None]
  - PHARMACEUTICAL PRODUCT COMPLAINT [None]
  - VOMITING [None]
